FAERS Safety Report 9596049 (Version 4)
Quarter: 2014Q1

REPORT INFORMATION
  Report Type: Spontaneous
  Country: US (occurrence: US)
  Receive Date: 20131004
  Receipt Date: 20140102
  Transmission Date: 20141002
  Serious: No
  Sender: FDA-Public Use
  Company Number: US-009507513-1310USA001685

PATIENT
  Sex: Female
  Weight: 64.85 kg

DRUGS (3)
  1. MIRALAX [Suspect]
     Indication: PRODUCT USED FOR UNKNOWN INDICATION
     Dosage: 17 G, HS
     Route: 048
  2. MIRALAX [Suspect]
     Dosage: UNK, HS
     Route: 048
  3. MIRALAX [Suspect]
     Dosage: UNK, HS
     Route: 048

REACTIONS (3)
  - Incorrect drug administration duration [Unknown]
  - Expired drug administered [Unknown]
  - Product taste abnormal [Unknown]
